FAERS Safety Report 4729471-8 (Version None)
Quarter: 2005Q3

REPORT INFORMATION
  Report Type: 
  Country: None (occurrence: None)
  Receive Date: 20050721
  Receipt Date: 20050615
  Transmission Date: 20060218
  Serious: No
  Sender: FDA-Public Use
  Company Number: 2005SP001411

PATIENT
  Age: 46 Year
  Sex: Female
  Weight: 92.0802 kg

DRUGS (5)
  1. LUNESTA [Suspect]
     Indication: INSOMNIA
     Dosage: 3 MG;HS;ORAL
     Route: 048
     Dates: start: 20050614
  2. LIPITOR [Concomitant]
  3. LEVOXYL [Concomitant]
  4. LEXAPRO [Concomitant]
  5. DAILY VITAMINS [Concomitant]

REACTIONS (1)
  - MIDDLE INSOMNIA [None]
